FAERS Safety Report 21749698 (Version 1)
Quarter: 2022Q4

REPORT INFORMATION
  Report Type: Spontaneous
  Country: FR (occurrence: FR)
  Receive Date: 20221219
  Receipt Date: 20221219
  Transmission Date: 20230113
  Serious: Yes (Other)
  Sender: FDA-Public Use
  Company Number: None

PATIENT
  Age: 48 Year
  Sex: Male
  Weight: 95 kg

DRUGS (8)
  1. ACETAMINOPHEN [Suspect]
     Active Substance: ACETAMINOPHEN
     Indication: Pain prophylaxis
     Route: 042
     Dates: start: 20220916, end: 20220916
  2. PROPOFOL [Suspect]
     Active Substance: PROPOFOL
     Indication: General anaesthesia
     Route: 042
     Dates: start: 20220916, end: 20220916
  3. KETOPROFEN [Suspect]
     Active Substance: KETOPROFEN
     Indication: Pain prophylaxis
     Route: 042
     Dates: start: 20220916, end: 20220916
  4. MIDAZOLAM [Suspect]
     Active Substance: MIDAZOLAM
     Indication: General anaesthesia
     Route: 042
     Dates: start: 20220916, end: 20220916
  5. ATRACURIUM [Suspect]
     Active Substance: ATRACURIUM
     Indication: General anaesthesia
     Route: 042
     Dates: start: 20220916, end: 20220916
  6. KETAMINE [Suspect]
     Active Substance: KETAMINE
     Indication: General anaesthesia
     Route: 042
     Dates: start: 20220916, end: 20220916
  7. SUFENTANIL [Suspect]
     Active Substance: SUFENTANIL
     Indication: General anaesthesia
     Route: 042
     Dates: start: 20220916, end: 20220916
  8. ACUPAN [Suspect]
     Active Substance: NEFOPAM HYDROCHLORIDE
     Indication: Pain prophylaxis
     Route: 042
     Dates: start: 20220916, end: 20220916

REACTIONS (2)
  - Bronchospasm [Recovered/Resolved]
  - Erythema [Recovered/Resolved]

NARRATIVE: CASE EVENT DATE: 20220916
